FAERS Safety Report 9800028 (Version 1)
Quarter: 2014Q1

REPORT INFORMATION
  Report Type: Spontaneous
  Country: US (occurrence: US)
  Receive Date: 20140106
  Receipt Date: 20140106
  Transmission Date: 20141002
  Serious: No
  Sender: FDA-Public Use
  Company Number: US-GILEAD-2010-0032100

PATIENT
  Age: 75 Year
  Sex: Female
  Weight: 100.7 kg

DRUGS (16)
  1. LETAIRIS [Suspect]
     Indication: PULMONARY ARTERIAL HYPERTENSION
     Route: 048
     Dates: start: 20100907, end: 20100922
  2. AMLODIPINE [Concomitant]
  3. METOPROLOL [Concomitant]
  4. ISOSORBIDE DN [Concomitant]
  5. LISINOPRIL [Concomitant]
  6. SIMVASTATIN [Concomitant]
  7. PLAVIX [Concomitant]
  8. ASPIRIN [Concomitant]
  9. FUROSEMIDE [Concomitant]
  10. RANITIDINE [Concomitant]
  11. TRAMADOL [Concomitant]
  12. ADVIL [Concomitant]
  13. TYLENOL [Concomitant]
  14. ALPRAZOLAM [Concomitant]
  15. FLUOXETINE [Concomitant]
  16. MULTIVITAMIN [Concomitant]

REACTIONS (1)
  - Dyspnoea [Unknown]
